FAERS Safety Report 21872377 (Version 1)
Quarter: 2023Q1

REPORT INFORMATION
  Report Type: Spontaneous
  Country: US (occurrence: US)
  Receive Date: 20230117
  Receipt Date: 20230117
  Transmission Date: 20230417
  Serious: No
  Sender: FDA-Public Use
  Company Number: US-PERRIGO-22US016162

PATIENT
  Age: 78 Year
  Sex: Female
  Weight: 56.689 kg

DRUGS (3)
  1. NICOTINE POLACRILEX [Suspect]
     Active Substance: NICOTINE
     Indication: Smoking cessation therapy
     Dosage: 2 MG, ABOUT 5 TIMES A DAY
     Route: 002
     Dates: start: 2019, end: 2022
  2. NICOTINE POLACRILEX [Suspect]
     Active Substance: NICOTINE
     Dosage: 2 MG, ABOUT 7 TIMES A DAY
     Route: 002
     Dates: start: 20221119, end: 20221128
  3. LISINOPRIL [Concomitant]
     Active Substance: LISINOPRIL
     Indication: Hypertension
     Dosage: UNK
     Route: 065

REACTIONS (1)
  - Drug ineffective [Unknown]

NARRATIVE: CASE EVENT DATE: 20221119
